FAERS Safety Report 5088584-4 (Version None)
Quarter: 2006Q3

REPORT INFORMATION
  Report Type: 
  Country: None (occurrence: None)
  Receive Date: 20060731
  Receipt Date: 20051215
  Transmission Date: 20061208
  Serious: Yes (Other)
  Sender: FDA-Public Use
  Company Number: US200512003022

PATIENT
  Age: 75 Year
  Sex: Female

DRUGS (2)
  1. FORTEO [Suspect]
     Dosage: 20 UG
     Dates: start: 20050408, end: 20051128
  2. FORTEO PEN, DISPOSABLE [Concomitant]

REACTIONS (1)
  - BLOOD CALCIUM INCREASED [None]
